FAERS Safety Report 21664733 (Version 2)
Quarter: 2023Q1

REPORT INFORMATION
  Report Type: Spontaneous
  Country: US (occurrence: US)
  Receive Date: 20221130
  Receipt Date: 20230106
  Transmission Date: 20230417
  Serious: No
  Sender: FDA-Public Use
  Company Number: US-KARYOPHARM-2022KPT001303

PATIENT

DRUGS (10)
  1. XPOVIO [Suspect]
     Active Substance: SELINEXOR
     Indication: Brain neoplasm malignant
     Dosage: 80 MG, WEEKLY
     Route: 048
     Dates: start: 202210, end: 20221116
  2. ESCITALOPRAM [Concomitant]
     Active Substance: ESCITALOPRAM OXALATE
  3. METOPROLOL [Concomitant]
     Active Substance: METOPROLOL
  4. ONDANSETRON [Concomitant]
     Active Substance: ONDANSETRON
  5. SIMVASTATIN [Concomitant]
     Active Substance: SIMVASTATIN
  6. HYDROCHLOROTHIAZIDE\TRIAMTERENE [Concomitant]
     Active Substance: HYDROCHLOROTHIAZIDE\TRIAMTERENE
  7. VAGIFEM [Concomitant]
     Active Substance: ESTRADIOL
  8. ZOLPIDEM [Concomitant]
     Active Substance: ZOLPIDEM TARTRATE
  9. SYNTHROID [Concomitant]
     Active Substance: LEVOTHYROXINE SODIUM
  10. DICLOFENAC [Concomitant]
     Active Substance: DICLOFENAC

REACTIONS (2)
  - No adverse event [Unknown]
  - Off label use [Unknown]

NARRATIVE: CASE EVENT DATE: 20220101
